FAERS Safety Report 9716900 (Version 1)
Quarter: 2013Q4

REPORT INFORMATION
  Report Type: Spontaneous
  Country: FR (occurrence: FR)
  Receive Date: 20131127
  Receipt Date: 20131127
  Transmission Date: 20140711
  Serious: Yes (Hospitalization)
  Sender: FDA-Public Use
  Company Number: FR-JNJFOC-20131111807

PATIENT
  Age: 55 Year
  Sex: Male

DRUGS (4)
  1. PREZISTA [Suspect]
     Indication: HIV TEST POSITIVE
     Route: 048
  2. NORVIR [Suspect]
     Indication: HIV TEST POSITIVE
     Route: 048
  3. KIVEXA [Suspect]
     Indication: HIV TEST POSITIVE
     Route: 048
  4. SUBUTEX [Suspect]
     Indication: DRUG DEPENDENCE
     Route: 048

REACTIONS (1)
  - Uveitis [Unknown]
